FAERS Safety Report 21504451 (Version 1)
Quarter: 2022Q4

REPORT INFORMATION
  Report Type: Spontaneous
  Country: US (occurrence: None)
  Receive Date: 20221025
  Receipt Date: 20221025
  Transmission Date: 20230112
  Serious: Yes (Hospitalization)
  Sender: FDA-Public Use
  Company Number: None

PATIENT
  Sex: Female

DRUGS (2)
  1. ONDANSETRON [Suspect]
     Active Substance: ONDANSETRON
  2. PHENYLEPHRINE [Suspect]
     Active Substance: PHENYLEPHRINE HYDROCHLORIDE

REACTIONS (7)
  - Exposure during pregnancy [None]
  - Maternal drugs affecting foetus [None]
  - Feeling abnormal [None]
  - Wrong product stored [None]
  - Product appearance confusion [None]
  - Drug monitoring procedure not performed [None]
  - Wrong product administered [None]

NARRATIVE: CASE EVENT DATE: 20221020
